FAERS Safety Report 9012735 (Version 1)
Quarter: 2013Q1

REPORT INFORMATION
  Report Type: Spontaneous
  Country: US (occurrence: US)
  Receive Date: 20130114
  Receipt Date: 20130114
  Transmission Date: 20140127
  Serious: Yes (Other)
  Sender: FDA-Public Use
  Company Number: US-009507513-1301USA002087

PATIENT
  Age: 46 Year
  Sex: 0

DRUGS (4)
  1. SINGULAIR [Suspect]
     Indication: ASTHMA
     Dosage: 10 MG PER DAY
     Route: 048
  2. PANTOPRAZOLE [Suspect]
     Dosage: 40 MG PER DAY
     Route: 048
  3. ALBUTEROL [Suspect]
     Dosage: RESPIRATORY (INHALATION)
  4. SERETIDE [Suspect]
     Dosage: RESPIRATORY (INHALATION)

REACTIONS (5)
  - Toothache [Unknown]
  - Tooth loss [Unknown]
  - Tooth disorder [Unknown]
  - Sensitivity of teeth [Unknown]
  - Gingivitis [Unknown]
